FAERS Safety Report 13090459 (Version 3)
Quarter: 2017Q2

REPORT INFORMATION
  Report Type: Spontaneous
  Country: US (occurrence: US)
  Receive Date: 20170105
  Receipt Date: 20170403
  Transmission Date: 20170830
  Serious: Yes (Hospitalization)
  Sender: FDA-Public Use
  Company Number: US-ACTELION-A-US2016-147675

PATIENT
  Age: 6 Month
  Sex: Male

DRUGS (8)
  1. TRACLEER [Suspect]
     Active Substance: BOSENTAN
     Dosage: 62.5 MG, BID
     Route: 048
     Dates: start: 20161031
  2. LASIX [Concomitant]
     Active Substance: FUROSEMIDE
  3. VITAMIN D [Concomitant]
     Active Substance: CHOLECALCIFEROL
  4. TRACLEER [Suspect]
     Active Substance: BOSENTAN
     Indication: PULMONARY ARTERIAL HYPERTENSION
     Dosage: 12 MG, BID
     Route: 048
     Dates: start: 20161031
  5. ALDACTONE [Concomitant]
     Active Substance: SPIRONOLACTONE
  6. PRILOSEC [Concomitant]
     Active Substance: OMEPRAZOLE MAGNESIUM
  7. ALBUTEROL. [Concomitant]
     Active Substance: ALBUTEROL
  8. ADCIRCA [Concomitant]
     Active Substance: TADALAFIL

REACTIONS (4)
  - Bronchitis [Recovering/Resolving]
  - Flushing [Not Recovered/Not Resolved]
  - Respiratory distress [Recovering/Resolving]
  - Human metapneumovirus test positive [Recovering/Resolving]

NARRATIVE: CASE EVENT DATE: 20170122
